FAERS Safety Report 8221250-2 (Version None)
Quarter: 2012Q1

REPORT INFORMATION
  Report Type: 
  Country: None (occurrence: None)
  Receive Date: 20120320
  Receipt Date: 20120312
  Transmission Date: 20120608
  Serious: Yes (Hospitalization, Other)
  Sender: FDA-Public Use
  Company Number: PHHY2011CA20696

PATIENT
  Sex: Female

DRUGS (1)
  1. SANDOSTATIN LAR [Suspect]
     Indication: CARCINOID TUMOUR
     Dosage: 30 MG, QMO
     Route: 030
     Dates: start: 20110304

REACTIONS (20)
  - FATIGUE [None]
  - NASAL CONGESTION [None]
  - PAIN [None]
  - ARTHRITIS INFECTIVE [None]
  - JOINT ABSCESS [None]
  - DRUG INEFFECTIVE [None]
  - CLOSTRIDIAL INFECTION [None]
  - JOINT SWELLING [None]
  - OPEN WOUND [None]
  - AGGRESSION [None]
  - NASOPHARYNGITIS [None]
  - MEMORY IMPAIRMENT [None]
  - ANXIETY [None]
  - OROPHARYNGEAL PAIN [None]
  - MUSCULOSKELETAL PAIN [None]
  - ARTHRALGIA [None]
  - ABDOMINAL PAIN [None]
  - GASTRIC DISORDER [None]
  - HYPOPHAGIA [None]
  - DECREASED APPETITE [None]
